FAERS Safety Report 9848980 (Version 1)
Quarter: 2014Q1

REPORT INFORMATION
  Report Type: Spontaneous
  Country: US (occurrence: None)
  Receive Date: 20140127
  Receipt Date: 20140127
  Transmission Date: 20141002
  Serious: Yes (Other)
  Sender: FDA-Public Use
  Company Number: None

PATIENT
  Age: 75 Year
  Sex: Male
  Weight: 86.18 kg

DRUGS (1)
  1. XARELTO [Suspect]
     Indication: ATRIAL FIBRILLATION
     Dosage: TAKEN BY MOUTH
     Dates: start: 20120315, end: 20120907

REACTIONS (3)
  - Bleeding time prolonged [None]
  - Feeling abnormal [None]
  - Lethargy [None]
